FAERS Safety Report 7119654-4 (Version None)
Quarter: 2010Q4

REPORT INFORMATION
  Report Type: 
  Country: None (occurrence: None)
  Receive Date: 20101123
  Receipt Date: 20101110
  Transmission Date: 20110411
  Serious: Yes (Hospitalization)
  Sender: FDA-Public Use
  Company Number: PHHY2010US74841

PATIENT
  Sex: Female

DRUGS (3)
  1. GLEEVEC [Suspect]
     Indication: PARAPROTEINAEMIA
     Dosage: 400 MG
     Route: 048
     Dates: start: 20100601
  2. FUROSEMIDE [Concomitant]
     Dosage: 80 MG
  3. ZAROXOLYN [Concomitant]
     Dosage: DAILY

REACTIONS (6)
  - CARDIAC FAILURE CONGESTIVE [None]
  - FLUID RETENTION [None]
  - LIVER DISORDER [None]
  - MENTAL DISORDER [None]
  - RENAL IMPAIRMENT [None]
  - THERAPEUTIC AGENT TOXICITY [None]
